FAERS Safety Report 8759226 (Version 6)
Quarter: 2013Q3

REPORT INFORMATION
  Report Type: Spontaneous
  Country: US (occurrence: US)
  Receive Date: 20120829
  Receipt Date: 20130918
  Transmission Date: 20140515
  Serious: Yes (Hospitalization, Disabling, Other)
  Sender: FDA-Public Use
  Company Number: US-009507513-1203USA01329

PATIENT
  Sex: Female
  Weight: 73.16 kg

DRUGS (2)
  1. FOSAMAX [Suspect]
     Indication: OSTEOPOROSIS
     Dosage: 70 MG, QW
     Route: 048
     Dates: start: 1995
  2. ALENDRONATE SODIUM [Suspect]
     Indication: OSTEOPOROSIS
     Dosage: 70 MG, QW
     Dates: start: 20080415, end: 20101123

REACTIONS (38)
  - Femur fracture [Unknown]
  - Thyroidectomy [Unknown]
  - Intramedullary rod insertion [Unknown]
  - Muscle strain [Not Recovered/Not Resolved]
  - Fall [Unknown]
  - Liver function test abnormal [Not Recovered/Not Resolved]
  - Low turnover osteopathy [Unknown]
  - Hypertension [Unknown]
  - Liver function test abnormal [Unknown]
  - Chronic obstructive pulmonary disease [Unknown]
  - Spinal osteoarthritis [Unknown]
  - Rib fracture [Unknown]
  - Ligament injury [Unknown]
  - Hypothyroidism [Unknown]
  - Cholecystitis chronic [Unknown]
  - Musculoskeletal disorder [Unknown]
  - Osteopenia [Unknown]
  - Cholelithiasis [Unknown]
  - Diverticulum [Unknown]
  - Haemorrhoids [Unknown]
  - Haemorrhoids [Unknown]
  - Sinusitis [Unknown]
  - Pulmonary mass [Unknown]
  - Dyspnoea [Unknown]
  - Haematuria [Unknown]
  - Rib fracture [Unknown]
  - Hypertension [Unknown]
  - Hepatic cyst [Unknown]
  - Myofascial pain syndrome [Unknown]
  - Meniscus injury [Unknown]
  - Gastrointestinal erosion [Unknown]
  - Carpal tunnel syndrome [Unknown]
  - Joint injury [Unknown]
  - Spinal disorder [Unknown]
  - Erythema [Unknown]
  - Oesophageal ulcer [Unknown]
  - Drug ineffective [Unknown]
  - Gastrooesophageal reflux disease [Unknown]
